FAERS Safety Report 23148288 (Version 1)
Quarter: 2023Q4

REPORT INFORMATION
  Report Type: Spontaneous
  Country: US (occurrence: US)
  Receive Date: 20231106
  Receipt Date: 20231106
  Transmission Date: 20240110
  Serious: No
  Sender: FDA-Public Use
  Company Number: US-VIIV HEALTHCARE LIMITED-US2023148565

PATIENT
  Age: 37 Year
  Sex: Male

DRUGS (2)
  1. RILPIVIRINE [Suspect]
     Active Substance: RILPIVIRINE
     Indication: Product used for unknown indication
     Dosage: UNK UNK, MO 600/900MG LOADING DOSE
     Route: 065
     Dates: start: 202307
  2. CABOTEGRAVIR [Suspect]
     Active Substance: CABOTEGRAVIR
     Indication: Product used for unknown indication
     Dosage: UNK UNK, MO 600/900MG LOADING DOSE
     Route: 065
     Dates: start: 202307

REACTIONS (1)
  - Inappropriate schedule of product administration [Unknown]

NARRATIVE: CASE EVENT DATE: 20230928
